FAERS Safety Report 19722444 (Version 1)
Quarter: 2021Q3

REPORT INFORMATION
  Report Type: Spontaneous
  Country: US (occurrence: US)
  Receive Date: 20210819
  Receipt Date: 20210819
  Transmission Date: 20211014
  Serious: No
  Sender: FDA-Public Use
  Company Number: US-ALFASIGMA USA, INC.-2020US007000

PATIENT

DRUGS (5)
  1. ZELNORM [Suspect]
     Active Substance: TEGASEROD MALEATE
     Dosage: 6 MG, BID
     Route: 048
     Dates: start: 2020
  2. ATENOLOL. [Concomitant]
     Active Substance: ATENOLOL
     Indication: HYPERTENSION
     Dosage: 25 MG, DAILY
  3. SIMVASTATIN. [Concomitant]
     Active Substance: SIMVASTATIN
     Indication: CARDIOVASCULAR DISORDER
  4. ALENDRONATE [Concomitant]
     Active Substance: ALENDRONATE SODIUM
     Indication: OSTEOPOROSIS
  5. PLAVIX [Concomitant]
     Active Substance: CLOPIDOGREL BISULFATE
     Indication: CARDIOVASCULAR DISORDER
     Dosage: UNK

REACTIONS (2)
  - Product use complaint [Not Recovered/Not Resolved]
  - Drug ineffective [Not Recovered/Not Resolved]
